FAERS Safety Report 10637939 (Version 1)
Quarter: 2014Q4

REPORT INFORMATION
  Report Type: Report from Study
  Country: AU (occurrence: AU)
  Receive Date: 20141208
  Receipt Date: 20141208
  Transmission Date: 20150529
  Serious: Yes (Death, Hospitalization)
  Sender: FDA-Public Use
  Company Number: AU-PFIZER INC-2014331015

PATIENT
  Age: 69 Year

DRUGS (1)
  1. CRIZOTINIB [Suspect]
     Active Substance: CRIZOTINIB

REACTIONS (3)
  - Death [Fatal]
  - Wound dehiscence [Unknown]
  - Performance status decreased [Unknown]

NARRATIVE: CASE EVENT DATE: 2013
